FAERS Safety Report 14447274 (Version 1)
Quarter: 2018Q1

REPORT INFORMATION
  Report Type: Spontaneous
  Country: DE (occurrence: DE)
  Receive Date: 20180126
  Receipt Date: 20180126
  Transmission Date: 20180509
  Serious: Yes (Other)
  Sender: FDA-Public Use
  Company Number: DE-MYLANLABS-2018M1005024

PATIENT
  Age: 40 Year
  Sex: Female
  Weight: 51 kg

DRUGS (1)
  1. AMITRIPTYLINE [Suspect]
     Active Substance: AMITRIPTYLINE
     Indication: SOMATIC SYMPTOM DISORDER
     Dosage: 10 MG, UNK
     Dates: start: 20171127, end: 20171128

REACTIONS (1)
  - Subileus [Unknown]

NARRATIVE: CASE EVENT DATE: 20171127
